FAERS Safety Report 7874250-6 (Version None)
Quarter: 2011Q4

REPORT INFORMATION
  Report Type: 
  Country: None (occurrence: None)
  Receive Date: 20111030
  Receipt Date: 20110518
  Transmission Date: 20120403
  Serious: No
  Sender: FDA-Public Use
  Company Number: US-AMGEN-USASP2011025747

PATIENT
  Sex: Female

DRUGS (17)
  1. CALTRATE +D                        /01204201/ [Concomitant]
     Dosage: 600 UNK, UNK
     Route: 048
  2. FOLIC ACID [Concomitant]
     Dosage: 1 MG, UNK
     Route: 048
  3. ALBUTEROL [Concomitant]
  4. EVOXAC [Concomitant]
     Dosage: 30 MG, UNK
     Route: 048
  5. FOSAMAX [Concomitant]
     Dosage: 10 MG, UNK
     Route: 048
  6. BUSPAR [Concomitant]
     Dosage: 5 MG, UNK
     Route: 048
  7. OMEPRAZOLE [Concomitant]
     Dosage: 20 MG, UNK
     Route: 048
  8. AMITRIPTYLINE HCL [Concomitant]
     Dosage: 75 MG, UNK
     Route: 048
  9. MULTI-VITAMINS [Concomitant]
     Route: 048
  10. ENBREL [Suspect]
     Indication: PRODUCT USED FOR UNKNOWN INDICATION
     Dosage: 50 MG, QWK
  11. NEURONTIN [Concomitant]
     Dosage: 800 MG, UNK
     Route: 048
  12. TRAMADOL HCL [Concomitant]
     Dosage: 50 MG, UNK
     Route: 048
  13. IMODIUM [Concomitant]
  14. METHOTREXATE [Concomitant]
     Dosage: 500 MG, UNK
  15. PREDNISONE [Concomitant]
     Dosage: 5 MG, UNK
     Route: 048
  16. SYMBICORT [Concomitant]
  17. SPIRIVA [Concomitant]

REACTIONS (2)
  - MALAISE [None]
  - GASTROINTESTINAL DISORDER [None]
